FAERS Safety Report 20029643 (Version 3)
Quarter: 2021Q4

REPORT INFORMATION
  Report Type: Report from Study
  Country: NL (occurrence: None)
  Receive Date: 20211103
  Receipt Date: 20211116
  Transmission Date: 20220303
  Serious: Yes (Death, Hospitalization)
  Sender: FDA-Public Use
  Company Number: NL-Eisai Medical Research-EC-2021-102485

PATIENT
  Age: 62 Year
  Sex: Male
  Weight: 100 kg

DRUGS (14)
  1. LENVATINIB [Suspect]
     Active Substance: LENVATINIB
     Indication: Hepatocellular carcinoma
     Dosage: STARING DOSE AT 12 MILLIGRAM DAILY, FLUCTUATED DOSAGE
     Route: 048
     Dates: start: 20210831, end: 20211018
  2. LENVATINIB [Suspect]
     Active Substance: LENVATINIB
     Route: 048
     Dates: start: 20211019, end: 20211019
  3. PEMBROLIZUMAB [Suspect]
     Active Substance: PEMBROLIZUMAB
     Indication: Hepatocellular carcinoma
     Route: 042
     Dates: start: 20210831, end: 20210831
  4. PEMBROLIZUMAB [Suspect]
     Active Substance: PEMBROLIZUMAB
     Route: 042
     Dates: start: 20211012, end: 20211012
  5. METOPROLOL [Concomitant]
     Active Substance: METOPROLOL
     Dates: start: 20130124, end: 20211028
  6. LERCANIDIPINE [Concomitant]
     Active Substance: LERCANIDIPINE
     Dates: start: 20130124, end: 20211025
  7. SPIRONOLACTONE [Concomitant]
     Active Substance: SPIRONOLACTONE
     Dates: start: 20130424, end: 20211025
  8. ESOMEPRAZOLE [Concomitant]
     Active Substance: ESOMEPRAZOLE
     Dates: start: 20130820
  9. METFORMIN [Concomitant]
     Active Substance: METFORMIN HYDROCHLORIDE
     Dates: start: 20150727, end: 20211026
  10. METFORMIN [Concomitant]
     Active Substance: METFORMIN HYDROCHLORIDE
     Dates: start: 20151124, end: 20211026
  11. TOUJEO [Concomitant]
     Active Substance: INSULIN GLARGINE
     Dates: start: 20151101
  12. CHOLECALCIFEROL [Concomitant]
     Active Substance: CHOLECALCIFEROL
     Dates: start: 20190513
  13. NOVORAPID [Concomitant]
     Active Substance: INSULIN ASPART
     Dates: start: 20210211
  14. LACTULOSE [Concomitant]
     Active Substance: LACTULOSE
     Dates: start: 20210910

REACTIONS (2)
  - Hepatic failure [Fatal]
  - Blood bilirubin increased [Not Recovered/Not Resolved]

NARRATIVE: CASE EVENT DATE: 20211019
